FAERS Safety Report 5670243-8 (Version None)
Quarter: 2008Q1

REPORT INFORMATION
  Report Type: 
  Country: None (occurrence: None)
  Receive Date: 20080318
  Receipt Date: 20080306
  Transmission Date: 20080703
  Serious: Yes (Other)
  Sender: FDA-Public Use
  Company Number: GB-RANBAXY-2008RR-13548

PATIENT

DRUGS (5)
  1. METFORMIN 500MG TABLETS [Suspect]
     Indication: TYPE 2 DIABETES MELLITUS
     Dosage: 500 MG, UNK
     Route: 048
     Dates: start: 20080129, end: 20080213
  2. LOPRAZOLAM [Concomitant]
     Dosage: 10 MBQ, QD
     Route: 048
     Dates: start: 20061123
  3. OMEPRAZOLE [Concomitant]
     Dosage: 20 MG, QD
     Route: 048
     Dates: start: 20061123
  4. SILDENAFIL CITRATE [Concomitant]
     Dosage: 50 MG, PRN
     Route: 048
     Dates: start: 20080117
  5. SIMVASTATIN [Concomitant]
     Dosage: 20 MG, QD
     Route: 048
     Dates: start: 20061123

REACTIONS (1)
  - EPISTAXIS [None]
